FAERS Safety Report 6120686-3 (Version None)
Quarter: 2009Q1

REPORT INFORMATION
  Report Type: 
  Country: None (occurrence: None)
  Receive Date: 20090312
  Receipt Date: 20090312
  Transmission Date: 20090719
  Serious: Yes (Hospitalization, Other)
  Sender: FDA-Public Use
  Company Number: None

PATIENT
  Sex: Female
  Weight: 56.6996 kg

DRUGS (8)
  1. EFFEXOR XR [Suspect]
     Indication: ANOREXIA NERVOSA
     Dosage: 150MG 1X DAY PO
     Route: 048
     Dates: start: 20070701, end: 20090205
  2. EFFEXOR XR [Suspect]
     Indication: MAJOR DEPRESSION
     Dosage: 150MG 1X DAY PO
     Route: 048
     Dates: start: 20070701, end: 20090205
  3. VENLAFAXINE HYDROCHLORIDE [Suspect]
     Dosage: 37.5MG 2X DAY PO
     Route: 048
     Dates: start: 20090206, end: 20090310
  4. NORETHINDRONE AND ETHINYL ESTRADIOL [Concomitant]
  5. ONE A DAY WEIGHT SMART ADVANCED [Concomitant]
  6. CALCIUM WITH VITAMIN D SUPPLEMENT [Concomitant]
  7. FISH OIL SUPPLEMENT [Concomitant]
  8. BUPROPION HCL [Concomitant]

REACTIONS (7)
  - DIZZINESS [None]
  - DRUG WITHDRAWAL SYNDROME [None]
  - FATIGUE [None]
  - HEADACHE [None]
  - MALAISE [None]
  - NAUSEA [None]
  - PARAESTHESIA [None]
